FAERS Safety Report 19691160 (Version 1)
Quarter: 2021Q3

REPORT INFORMATION
  Report Type: Spontaneous
  Country: CN (occurrence: CN)
  Receive Date: 20210812
  Receipt Date: 20210812
  Transmission Date: 20211014
  Serious: Yes (Hospitalization)
  Sender: FDA-Public Use
  Company Number: CN-DRREDDYS-GPV/CHN/21/0131442

PATIENT
  Age: 65 Year
  Sex: Male

DRUGS (2)
  1. OLANZ [Suspect]
     Active Substance: OLANZAPINE
     Indication: DEPRESSION
     Route: 048
  2. OLANZ [Suspect]
     Active Substance: OLANZAPINE
     Route: 048
     Dates: start: 20210112

REACTIONS (2)
  - Accidental overdose [Recovered/Resolved]
  - Lethargy [Recovered/Resolved]

NARRATIVE: CASE EVENT DATE: 20210112
